FAERS Safety Report 4374577-9 (Version None)
Quarter: 2004Q2

REPORT INFORMATION
  Report Type: 
  Country: None (occurrence: None)
  Receive Date: 20040603
  Receipt Date: 20040517
  Transmission Date: 20050107
  Serious: Yes (Life-Threatening)
  Sender: FDA-Public Use
  Company Number: GBS040514939

PATIENT
  Age: 48 Year
  Sex: Male
  Weight: 95 kg

DRUGS (3)
  1. NIZATIDINE [Suspect]
     Indication: PROPHYLAXIS
     Dosage: 150 MG/2 DAY
     Dates: start: 20040213, end: 20040406
  2. PREDNISOLONE [Concomitant]
  3. PENICILLIN V [Concomitant]

REACTIONS (1)
  - AGRANULOCYTOSIS [None]
